FAERS Safety Report 19272932 (Version 2)
Quarter: 2021Q3

REPORT INFORMATION
  Report Type: Spontaneous
  Country: US (occurrence: US)
  Receive Date: 20210518
  Receipt Date: 20210930
  Transmission Date: 20211014
  Serious: No
  Sender: FDA-Public Use
  Company Number: US-SA-2021SA162741

PATIENT
  Age: 17 Year
  Sex: Female

DRUGS (1)
  1. CABLIVI [Suspect]
     Active Substance: CAPLACIZUMAB-YHDP
     Indication: THROMBOTIC MICROANGIOPATHY
     Dosage: 11 MG, QD
     Route: 048
     Dates: start: 20210424

REACTIONS (2)
  - Product administered to patient of inappropriate age [Unknown]
  - Stress [Unknown]

NARRATIVE: CASE EVENT DATE: 2021
